FAERS Safety Report 8926302 (Version 1)
Quarter: 2012Q4

REPORT INFORMATION
  Report Type: 
  Country: GB (occurrence: GB)
  Receive Date: 20121127
  Receipt Date: 20121127
  Transmission Date: 20130627
  Serious: Yes (Hospitalization)
  Sender: FDA-Public Use
  Company Number: GB-BRISTOL-MYERS SQUIBB COMPANY-17134701

PATIENT
  Age: 51 Year
  Sex: Female
  Weight: 50.8 kg

DRUGS (5)
  1. SUSTIVA [Suspect]
     Indication: HIV INFECTION
     Route: 048
     Dates: start: 20121015, end: 20121016
  2. CO-TRIMOXAZOLE [Concomitant]
  3. TRUVADA [Concomitant]
  4. RITONAVIR [Concomitant]
  5. ATAZANAVIR [Concomitant]

REACTIONS (10)
  - Headache [Recovering/Resolving]
  - Medication error [Unknown]
  - Panic attack [Recovering/Resolving]
  - Hyperhidrosis [Recovering/Resolving]
  - Blood pressure increased [Recovering/Resolving]
  - Sleep disorder [Unknown]
  - Abnormal dreams [Unknown]
  - Abdominal pain upper [Unknown]
  - Prescribed overdose [Unknown]
  - Asthenia [Unknown]
